FAERS Safety Report 8486520-1 (Version None)
Quarter: 2012Q3

REPORT INFORMATION
  Report Type: 
  Country: None (occurrence: None)
  Receive Date: 20120703
  Receipt Date: 20120702
  Transmission Date: 20120928
  Serious: Yes (Other)
  Sender: FDA-Public Use
  Company Number: US-PFIZER INC-2012158596

PATIENT
  Sex: Male
  Weight: 79 kg

DRUGS (4)
  1. LYRICA [Suspect]
     Indication: OSTEOARTHRITIS
     Dosage: 100 MG, 2X/DAY
     Route: 048
  2. CYMBALTA [Concomitant]
     Dosage: 60 MG, UNK
  3. LOVASTATIN [Concomitant]
     Indication: BLOOD CHOLESTEROL ABNORMAL
     Dosage: UNK
  4. LYRICA [Suspect]
     Indication: SPINAL COLUMN STENOSIS
     Dosage: 100 MG, 3X/DAY
     Route: 048
     Dates: start: 20110401

REACTIONS (4)
  - HYPERAESTHESIA [None]
  - ANAEMIA [None]
  - OEDEMA PERIPHERAL [None]
  - WEIGHT INCREASED [None]
